FAERS Safety Report 9548479 (Version 1)
Quarter: 2013Q3

REPORT INFORMATION
  Report Type: Spontaneous
  Country: US (occurrence: US)
  Receive Date: 20130924
  Receipt Date: 20130924
  Transmission Date: 20140515
  Serious: No
  Sender: FDA-Public Use
  Company Number: US-PFIZER INC-2013270217

PATIENT
  Age: 79 Year
  Sex: Female

DRUGS (5)
  1. SUTENT [Suspect]
     Indication: RENAL CANCER
     Dosage: 25 MG, UNK
     Dates: start: 20130311
  2. LATANOPROST [Concomitant]
     Dosage: UNK
  3. CALCIUM 600+ D PLUS MINERALS [Concomitant]
     Dosage: UNK
  4. CO-Q-10 [Concomitant]
     Dosage: UNK
  5. METOPROLOL SUCCINATE ER [Concomitant]
     Dosage: UNK

REACTIONS (1)
  - Fatigue [Unknown]
